FAERS Safety Report 5169867-6 (Version None)
Quarter: 2006Q4

REPORT INFORMATION
  Report Type: 
  Country: None (occurrence: None)
  Receive Date: 20061212
  Receipt Date: 20060306
  Transmission Date: 20070319
  Serious: Yes (Hospitalization)
  Sender: FDA-Public Use
  Company Number: US-ELI_LILLY_AND_COMPANY-US200605005853

PATIENT
  Age: 65 Year
  Sex: Female
  Weight: 92.97 kg

DRUGS (6)
  1. ZYPREXA [Suspect]
     Indication: BIPOLAR DISORDER
     Dosage: 10 MG, UNK
     Route: 048
     Dates: start: 19980501, end: 20060201
  2. ZYPREXA [Suspect]
     Dosage: 2.5 MG, UNK
     Route: 048
     Dates: start: 20060201, end: 20060201
  3. LITHIUM CARBONATE [Concomitant]
     Route: 048
     Dates: start: 19720101
  4. BUPROPION HCL [Concomitant]
     Route: 048
     Dates: start: 19990101
  5. ARIPIPRAZOLE [Concomitant]
     Route: 048
     Dates: start: 20030701, end: 20031001
  6. QUETIAPINE FUMARATE [Concomitant]
     Route: 048
     Dates: start: 20040301, end: 20040601

REACTIONS (7)
  - BLOOD CHOLESTEROL INCREASED [None]
  - BLOOD TRIGLYCERIDES INCREASED [None]
  - BRADYCARDIA [None]
  - CARDIAC MONITORING [None]
  - DIABETES MELLITUS [None]
  - HYPERTENSION [None]
  - OBESITY [None]
